FAERS Safety Report 20873636 (Version 4)
Quarter: 2023Q1

REPORT INFORMATION
  Report Type: Report from Study
  Country: US (occurrence: US)
  Receive Date: 20220525
  Receipt Date: 20230315
  Transmission Date: 20230418
  Serious: No
  Sender: FDA-Public Use
  Company Number: US-NOVARTISTESTPH-NVSC2022US120914

PATIENT
  Age: 54 Year
  Sex: Male

DRUGS (2)
  1. LEQVIO [Suspect]
     Active Substance: INCLISIRAN SODIUM
     Indication: Product used for unknown indication
     Dosage: UNK
     Route: 058
     Dates: start: 20220419
  2. LEQVIO [Suspect]
     Active Substance: INCLISIRAN SODIUM
     Dosage: UNK
     Route: 058
     Dates: start: 20220721

REACTIONS (6)
  - Illness [Unknown]
  - Nasopharyngitis [Unknown]
  - Pain [Unknown]
  - Chondropathy [Unknown]
  - Pain in extremity [Unknown]
  - Arthritis [Unknown]

NARRATIVE: CASE EVENT DATE: 20220524
